FAERS Safety Report 11121763 (Version 1)
Quarter: 2015Q2

REPORT INFORMATION
  Report Type: Spontaneous
  Country: GB (occurrence: GB)
  Receive Date: 20150519
  Receipt Date: 20150519
  Transmission Date: 20150821
  Serious: Yes (Hospitalization)
  Sender: FDA-Public Use
  Company Number: GB-TEVA-562796ACC

PATIENT
  Age: 67 Year
  Sex: Female

DRUGS (2)
  1. GLICLAZIDE [Suspect]
     Active Substance: GLICLAZIDE
     Indication: DIABETES MELLITUS
     Dosage: 80 MILLIGRAM DAILY;
     Route: 065
     Dates: start: 201504
  2. METFORMIN [Suspect]
     Active Substance: METFORMIN HYDROCHLORIDE
     Indication: DIABETES MELLITUS
     Dosage: 500 TDS
     Route: 065
     Dates: end: 201504

REACTIONS (5)
  - Blood glucose increased [Unknown]
  - Gait disturbance [Unknown]
  - Ill-defined disorder [Unknown]
  - Increased appetite [Unknown]
  - Fall [Unknown]

NARRATIVE: CASE EVENT DATE: 201504
